FAERS Safety Report 4738409-9 (Version None)
Quarter: 2005Q3

REPORT INFORMATION
  Report Type: 
  Country: None (occurrence: None)
  Receive Date: 20050809
  Receipt Date: 20050801
  Transmission Date: 20060218
  Serious: Yes (Other)
  Sender: FDA-Public Use
  Company Number: DK-GLAXOSMITHKLINE-B0389983A

PATIENT
  Age: 6 Day
  Sex: Male

DRUGS (2)
  1. LAMICTAL [Suspect]
     Indication: EPILEPSY
  2. VIGABATRIN [Suspect]
     Indication: EPILEPSY

REACTIONS (6)
  - CAESAREAN SECTION [None]
  - CRYING [None]
  - DRUG EXPOSURE DURING PREGNANCY [None]
  - NEONATAL DISORDER [None]
  - NORMAL DELIVERY [None]
  - SEPSIS NEONATAL [None]
